FAERS Safety Report 7714351-6 (Version None)
Quarter: 2011Q3

REPORT INFORMATION
  Report Type: 
  Country: None (occurrence: None)
  Receive Date: 20110829
  Receipt Date: 20110818
  Transmission Date: 20111222
  Serious: No
  Sender: FDA-Public Use
  Company Number: US-BIOGENIDEC-2011BI032128

PATIENT
  Age: 55 Year
  Sex: Female

DRUGS (2)
  1. AVONEX [Suspect]
     Indication: MULTIPLE SCLEROSIS
     Route: 030
     Dates: start: 20030101, end: 20031201
  2. AVONEX [Suspect]
     Route: 030
     Dates: start: 19991001, end: 20030101

REACTIONS (2)
  - INJECTION SITE INDURATION [None]
  - INJECTION SITE PAIN [None]
